FAERS Safety Report 9243214 (Version 1)
Quarter: 2013Q2

REPORT INFORMATION
  Report Type: Spontaneous
  Country: GB (occurrence: GB)
  Receive Date: 20130419
  Receipt Date: 20130419
  Transmission Date: 20140414
  Serious: Yes (Hospitalization)
  Sender: FDA-Public Use
  Company Number: GB-UCBSA-079376

PATIENT
  Age: 55 Year
  Sex: Female

DRUGS (4)
  1. CIMZIA [Suspect]
     Indication: RHEUMATOID ARTHRITIS
     Dosage: DOSE: 400 MG X 2 INJECTIONS FINISHED, 200 MG X 2 INJECTIONS
     Route: 058
     Dates: start: 20121112, end: 20130125
  2. METHOTREXATE [Concomitant]
     Dosage: UNKNOWN DOSE
  3. HYDROXYCHLOROQUINE [Concomitant]
     Dosage: UNKNOWN DOSE
  4. PREDNISOLONE [Concomitant]
     Dosage: UNKNOWN DOSE

REACTIONS (1)
  - Myositis [Recovering/Resolving]
